FAERS Safety Report 9597068 (Version 1)
Quarter: 2013Q4

REPORT INFORMATION
  Report Type: Spontaneous
  Country: US (occurrence: US)
  Receive Date: 20131004
  Receipt Date: 20131004
  Transmission Date: 20140711
  Serious: Yes (Other)
  Sender: FDA-Public Use
  Company Number: CHPA2013US015128

PATIENT
  Age: 69 Year
  Sex: Male

DRUGS (2)
  1. THERAFLU NIGHTTIME SEVERE COLD + COUGH [Suspect]
     Indication: BRONCHITIS
     Dosage: UNK, UNK
     Dates: end: 201202
  2. THERAFLU NIGHTTIME SEVERE COLD + COUGH [Suspect]
     Indication: OFF LABEL USE

REACTIONS (4)
  - Breast cancer [Unknown]
  - Thyroid cancer [Unknown]
  - Skin cancer [Unknown]
  - Therapeutic response unexpected [Unknown]
